FAERS Safety Report 24173464 (Version 1)
Quarter: 2024Q3

REPORT INFORMATION
  Report Type: Spontaneous
  Country: US (occurrence: US)
  Receive Date: 20240805
  Receipt Date: 20240805
  Transmission Date: 20241017
  Serious: Yes (Death)
  Sender: SPECGX
  Company Number: US-SPECGX-T202401624

PATIENT
  Age: 12 Year
  Sex: Male

DRUGS (2)
  1. POSACONAZOLE [Suspect]
     Active Substance: POSACONAZOLE
     Indication: Prophylaxis
     Dosage: 500 MILLIGRAM, QD (200 MG PO QAM AND 300 MG PO QPM)
     Route: 048
  2. POSACONAZOLE [Suspect]
     Active Substance: POSACONAZOLE
     Dosage: 500 MILLIGRAM, QD (200 MG NG QAM AND 300 MG NG QPM)

REACTIONS (5)
  - Death [Fatal]
  - Wrong technique in product usage process [Unknown]
  - Drug level below therapeutic [Unknown]
  - Incorrect dose administered [Unknown]
  - Product use issue [Unknown]
